FAERS Safety Report 15508518 (Version 2)
Quarter: 2018Q4

REPORT INFORMATION
  Report Type: Spontaneous
  Country: RU (occurrence: RU)
  Receive Date: 20181016
  Receipt Date: 20181031
  Transmission Date: 20190205
  Serious: Yes (Other)
  Sender: FDA-Public Use
  Company Number: RU-ELI_LILLY_AND_COMPANY-RU201810006874

PATIENT
  Age: 44 Year
  Sex: Male

DRUGS (8)
  1. CISPLATIN. [Concomitant]
     Active Substance: CISPLATIN
     Dosage: 120 MG, UNK
     Dates: start: 20180626
  2. ERBITUX [Suspect]
     Active Substance: CETUXIMAB
     Dosage: 460 MG, WEEKLY (1/W)
     Route: 042
     Dates: start: 20180201
  3. ERBITUX [Suspect]
     Active Substance: CETUXIMAB
     Dosage: 450 MG, WEEKLY (1/W)
     Route: 042
     Dates: start: 20180703
  4. GEMCITABINE [Concomitant]
     Active Substance: GEMCITABINE\GEMCITABINE HYDROCHLORIDE
     Dosage: UNK UNK, UNKNOWN
     Route: 065
     Dates: start: 20180724
  5. ERBITUX [Suspect]
     Active Substance: CETUXIMAB
     Indication: NASAL CAVITY CANCER
     Dosage: 165 MG, UNKNOWN
     Route: 042
     Dates: start: 20180118
  6. GEMCITABINE [Concomitant]
     Active Substance: GEMCITABINE\GEMCITABINE HYDROCHLORIDE
     Indication: NASAL CAVITY CANCER
     Dosage: 2.2 G, UNKNOWN
     Route: 065
     Dates: start: 20180626
  7. ERBITUX [Suspect]
     Active Substance: CETUXIMAB
     Dosage: 740 MG, UNKNOWN
     Route: 042
     Dates: start: 20180125
  8. CISPLATIN. [Concomitant]
     Active Substance: CISPLATIN
     Indication: NASAL CAVITY CANCER
     Dosage: 175 MG, UNKNOWN
     Route: 065
     Dates: start: 20171127, end: 20171224

REACTIONS (5)
  - Alanine aminotransferase increased [Unknown]
  - Leukopenia [Unknown]
  - Neutropenia [Recovered/Resolved]
  - Aspartate aminotransferase increased [Recovered/Resolved]
  - Off label use [Unknown]

NARRATIVE: CASE EVENT DATE: 2018
